FAERS Safety Report 9396797 (Version 1)
Quarter: 2013Q3

REPORT INFORMATION
  Report Type: Other
  Country: TW (occurrence: TW)
  Receive Date: 20130712
  Receipt Date: 20130712
  Transmission Date: 20140515
  Serious: Yes (Other)
  Sender: FDA-Public Use
  Company Number: TW-BRISTOL-MYERS SQUIBB COMPANY-19076223

PATIENT
  Age: 19 Year
  Sex: Male

DRUGS (1)
  1. WARFARIN SODIUM [Suspect]
     Indication: STENT PLACEMENT

REACTIONS (1)
  - Calciphylaxis [Recovered/Resolved]
